FAERS Safety Report 14664006 (Version 2)
Quarter: 2018Q2

REPORT INFORMATION
  Report Type: Spontaneous
  Country: US (occurrence: US)
  Receive Date: 20180321
  Receipt Date: 20180411
  Transmission Date: 20180711
  Serious: Yes (Other)
  Sender: FDA-Public Use
  Company Number: US-JNJFOC-20180321110

PATIENT
  Age: 69 Year
  Sex: Female
  Weight: 80.29 kg

DRUGS (1)
  1. STELARA [Suspect]
     Active Substance: USTEKINUMAB
     Indication: CROHN^S DISEASE
     Route: 058
     Dates: start: 20170426, end: 201801

REACTIONS (11)
  - Pruritus [Unknown]
  - Hypertension [Unknown]
  - Mitral valve prolapse [Unknown]
  - Faeces discoloured [Recovering/Resolving]
  - Product storage error [Unknown]
  - Poor quality drug administered [Unknown]
  - Gastrooesophageal reflux disease [Unknown]
  - Hypoparathyroidism [Unknown]
  - Pulmonary mass [Not Recovered/Not Resolved]
  - Deep vein thrombosis [Recovering/Resolving]
  - Rash [Recovering/Resolving]

NARRATIVE: CASE EVENT DATE: 201712
